FAERS Safety Report 8473814-9 (Version None)
Quarter: 2012Q2

REPORT INFORMATION
  Report Type: 
  Country: None (occurrence: None)
  Receive Date: 20120628
  Receipt Date: 20120104
  Transmission Date: 20120825
  Serious: Yes (Other)
  Sender: FDA-Public Use
  Company Number: US-MYLANLABS-2011S1024867

PATIENT
  Age: 36 Year
  Sex: Female

DRUGS (21)
  1. LORAZEPAM [Concomitant]
  2. BACTRIM [Concomitant]
     Route: 048
  3. BENZAC /00088302/ [Concomitant]
  4. LIPITOR [Concomitant]
     Route: 048
  5. CLOZAPINE [Suspect]
     Indication: BIPOLAR DISORDER
  6. DETROL LA [Concomitant]
  7. GLYCOPYRROLATE [Concomitant]
     Route: 048
  8. LEVOTHYROXINE [Concomitant]
     Route: 048
  9. TRIAMTERENE AND HYDROCHLOROTHIAZIDE [Concomitant]
     Route: 048
  10. VALTREX [Concomitant]
     Route: 048
  11. VOLTAREN [Concomitant]
     Dosage: PRN
  12. CYTOMEL [Concomitant]
     Route: 048
  13. ESTRADIOL [Concomitant]
     Route: 048
  14. METFORMIN HCL [Concomitant]
     Route: 048
  15. NASONEX [Concomitant]
     Route: 045
  16. POLYETHYLENE GLYCOL [Concomitant]
     Route: 061
  17. DICYCLOMINE [Concomitant]
     Route: 048
  18. NYSTATIN [Concomitant]
  19. PANTOPRAZOLE [Concomitant]
     Route: 048
  20. TIZANIDINE HYDROCHLORIDE [Concomitant]
     Route: 048
  21. ALBUTEROL SULFATE [Concomitant]
     Route: 055

REACTIONS (3)
  - AGRANULOCYTOSIS [None]
  - GRANULOCYTOPENIA [None]
  - LEUKOPENIA [None]
